FAERS Safety Report 5189129-0 (Version None)
Quarter: 2006Q4

REPORT INFORMATION
  Report Type: 
  Country: None (occurrence: None)
  Receive Date: 20061218
  Receipt Date: 20061205
  Transmission Date: 20070319
  Serious: Yes (Other)
  Sender: FDA-Public Use
  Company Number: GXKR2006US07980

PATIENT
  Age: 42 Year
  Sex: Female

DRUGS (1)
  1. PENICILLIN G SODIUM [Suspect]
     Indication: PYREXIA
     Dosage: UNK, UNK, INTRAMUSCULAR

REACTIONS (5)
  - EMBOLIA CUTIS MEDICAMENTOSA [None]
  - ERYTHEMA [None]
  - PAIN IN EXTREMITY [None]
  - PRURITUS [None]
  - URTICARIA [None]
